FAERS Safety Report 19872751 (Version 1)
Quarter: 2021Q3

REPORT INFORMATION
  Report Type: Spontaneous
  Country: DE (occurrence: DE)
  Receive Date: 20210922
  Receipt Date: 20210922
  Transmission Date: 20211014
  Serious: Yes (Hospitalization)
  Sender: FDA-Public Use
  Company Number: DE-TEVA-2021-DE-1955912

PATIENT
  Age: 63 Year
  Sex: Female

DRUGS (19)
  1. DURVALUMAB. [Suspect]
     Active Substance: DURVALUMAB
     Dosage: 1120 MG
     Route: 042
  2. APREPITANT. [Concomitant]
     Active Substance: APREPITANT
     Indication: CHEMOTHERAPY SIDE EFFECT PROPHYLAXIS
     Dosage: 125 MG
     Route: 048
     Dates: start: 20210309
  3. DEXAMETHASONE. [Concomitant]
     Active Substance: DEXAMETHASONE
     Indication: CHEMOTHERAPY SIDE EFFECT PROPHYLAXIS
     Dosage: 20 MG
     Route: 042
     Dates: start: 20210309
  4. PACLITAXEL. [Concomitant]
     Active Substance: PACLITAXEL
     Dosage: 301 MG
  5. PACLITAXEL. [Concomitant]
     Active Substance: PACLITAXEL
     Dosage: 303 MG
  6. BEVACIZUMAB. [Concomitant]
     Active Substance: BEVACIZUMAB
     Dosage: 1080 MG
  7. BEVACIZUMAB. [Concomitant]
     Active Substance: BEVACIZUMAB
     Dosage: 1080 MG
  8. DIMETINDENE MALEATE [Concomitant]
     Active Substance: DIMETHINDENE MALEATE
     Indication: CHEMOTHERAPY SIDE EFFECT PROPHYLAXIS
     Dosage: 4 MG
     Route: 042
     Dates: start: 20210309
  9. FAMOTIDINE. [Concomitant]
     Active Substance: FAMOTIDINE
     Indication: CHEMOTHERAPY SIDE EFFECT PROPHYLAXIS
     Dosage: 20 MG
     Route: 048
     Dates: start: 20210309
  10. OLAPARIB. [Suspect]
     Active Substance: OLAPARIB
     Indication: OVARIAN CANCER
     Dosage: ORAL .
     Route: 048
  11. GRANISETRON [Concomitant]
     Active Substance: GRANISETRON
     Indication: CHEMOTHERAPY SIDE EFFECT PROPHYLAXIS
     Dosage: 1 MG
     Route: 042
     Dates: start: 20210309
  12. CARBOPLATIN. [Suspect]
     Active Substance: CARBOPLATIN
     Indication: OVARIAN CANCER
     Dosage: 490 MG
     Route: 065
  13. DURVALUMAB. [Suspect]
     Active Substance: DURVALUMAB
     Indication: OVARIAN CANCER
     Dosage: 1120 MG
     Route: 042
  14. BEVACIZUMAB. [Concomitant]
     Active Substance: BEVACIZUMAB
     Indication: OVARIAN CANCER
     Dosage: 1080 MG
  15. ASTRAZENECA COVID?19 VACCINE [Suspect]
     Active Substance: AZD-1222
     Indication: COVID-19 PROPHYLAXIS
     Route: 030
     Dates: start: 20210308, end: 20210308
  16. DURVALUMAB. [Suspect]
     Active Substance: DURVALUMAB
     Dosage: 1120 MG
     Route: 042
  17. EFEROX [Concomitant]
     Active Substance: LEVOTHYROXINE SODIUM
     Indication: THYROID OPERATION
     Dosage: 88 MCG
     Route: 048
     Dates: start: 19940101
  18. PACLITAXEL. [Concomitant]
     Active Substance: PACLITAXEL
     Indication: OVARIAN CANCER
     Dosage: 303 MG
  19. PACLITAXEL. [Concomitant]
     Active Substance: PACLITAXEL
     Dosage: 303 MG

REACTIONS (1)
  - Vaccination complication [Recovered/Resolved]

NARRATIVE: CASE EVENT DATE: 20210312
